FAERS Safety Report 15528507 (Version 2)
Quarter: 2018Q4

REPORT INFORMATION
  Report Type: Spontaneous
  Country: GB (occurrence: GB)
  Receive Date: 20181020
  Receipt Date: 20181020
  Transmission Date: 20190205
  Serious: Yes (Hospitalization, Disabling, Other)
  Sender: FDA-Public Use
  Company Number: GB-ACCORD-073532

PATIENT
  Age: 78 Year
  Sex: Female
  Weight: 83.7 kg

DRUGS (11)
  1. SILDENAFIL. [Concomitant]
     Active Substance: SILDENAFIL
  2. PREDNISOLONE. [Concomitant]
     Active Substance: PREDNISOLONE
  3. MYCOPHENOLIC ACID. [Suspect]
     Active Substance: MYCOPHENOLIC ACID
     Indication: PULMONARY FIBROSIS
     Route: 048
     Dates: start: 20180222, end: 20180223
  4. SPIRONOLACTONE. [Concomitant]
     Active Substance: SPIRONOLACTONE
  5. OPSUMIT [Concomitant]
     Active Substance: MACITENTAN
  6. BENZALKONIUM CHLORIDE/CHLORHEXIDINE HYDROCHLORIDE/ISOPROPYL MYRISTATE/PARAFFIN/LIQUID [Concomitant]
  7. DALTEPARIN [Concomitant]
     Active Substance: DALTEPARIN
  8. FUROSEMIDE. [Concomitant]
     Active Substance: FUROSEMIDE
  9. POTASSIUM CHLORIDE/POTASSIUM BICARBONATE [Concomitant]
  10. CO-AMOXICLAV [Concomitant]
     Active Substance: AMOXICILLIN\CLAVULANATE POTASSIUM
     Indication: URINARY TRACT INFECTION
     Dates: start: 20180203, end: 20180205
  11. OMEPRAZOLE. [Concomitant]
     Active Substance: OMEPRAZOLE

REACTIONS (7)
  - Pyrexia [Recovering/Resolving]
  - Tachypnoea [Recovering/Resolving]
  - Tachycardia [Not Recovered/Not Resolved]
  - Mouth ulceration [Recovering/Resolving]
  - Product dispensing error [Unknown]
  - Dehydration [Unknown]
  - Off label use [Unknown]
